FAERS Safety Report 4369939-X (Version None)
Quarter: 2004Q2

REPORT INFORMATION
  Report Type: 
  Country: None (occurrence: None)
  Receive Date: 20040527
  Receipt Date: 20040507
  Transmission Date: 20050107
  Serious: Yes (Other)
  Sender: FDA-Public Use
  Company Number: GBS040514884

PATIENT
  Age: 15 Year
  Sex: Female

DRUGS (1)
  1. SOMATROPIN [Suspect]
     Dosage: 1.2 MG

REACTIONS (1)
  - BRAIN STEM HAEMORRHAGE [None]
